FAERS Safety Report 6394389-4 (Version None)
Quarter: 2009Q4

REPORT INFORMATION
  Report Type: 
  Country: None (occurrence: None)
  Receive Date: 20091008
  Receipt Date: 20090928
  Transmission Date: 20100525
  Serious: Yes (Hospitalization)
  Sender: FDA-Public Use
  Company Number: MX-BAXTER-2009BH015093

PATIENT
  Sex: Male

DRUGS (2)
  1. DIANEAL [Suspect]
     Indication: PERITONEAL DIALYSIS
     Route: 033
     Dates: start: 20090911
  2. DIANEAL [Suspect]
     Route: 033
     Dates: start: 20090910, end: 20090911

REACTIONS (8)
  - BRADYCARDIA [None]
  - ERYTHEMA [None]
  - FEELING HOT [None]
  - HYPOTENSION [None]
  - PRURITUS [None]
  - PRURITUS GENERALISED [None]
  - RASH [None]
  - SKIN DISORDER [None]
